FAERS Safety Report 7775383-5 (Version None)
Quarter: 2011Q3

REPORT INFORMATION
  Report Type: 
  Country: None (occurrence: None)
  Receive Date: 20110923
  Receipt Date: 20110915
  Transmission Date: 20111222
  Serious: Yes (Hospitalization, Other)
  Sender: FDA-Public Use
  Company Number: PHEH2011US04246

PATIENT
  Sex: Male

DRUGS (1)
  1. TOBI [Suspect]
     Dates: start: 20110825

REACTIONS (4)
  - COUGH [None]
  - RESPIRATORY DISTRESS [None]
  - INFECTION [None]
  - ACUTE RESPIRATORY FAILURE [None]
